FAERS Safety Report 6163938-3 (Version None)
Quarter: 2009Q2

REPORT INFORMATION
  Report Type: 
  Country: None (occurrence: None)
  Receive Date: 20090422
  Receipt Date: 20090422
  Transmission Date: 20091009
  Serious: Yes (Death, Other)
  Sender: FDA-Public Use
  Company Number: PHHY2009ES15006

PATIENT
  Sex: Male

DRUGS (2)
  1. EXELON [Suspect]
     Indication: DEMENTIA
     Dosage: 3 MG DAILY
     Route: 048
     Dates: start: 20070314, end: 20070319
  2. PROPYL-THIOURACIL [Suspect]
     Indication: HYPERTHYROIDISM
     Dosage: 300 MG DAILY
     Route: 048
     Dates: start: 20070314, end: 20070319

REACTIONS (2)
  - ANAEMIA [None]
  - DEATH [None]
